FAERS Safety Report 5287207-9 (Version None)
Quarter: 2007Q2

REPORT INFORMATION
  Report Type: 
  Country: None (occurrence: None)
  Receive Date: 20070404
  Receipt Date: 20070323
  Transmission Date: 20071010
  Serious: Yes (Death)
  Sender: FDA-Public Use
  Company Number: BR-PFIZER INC-2007023716

PATIENT
  Sex: Female

DRUGS (2)
  1. VFEND [Suspect]
     Indication: FUSARIUM INFECTION
     Dates: start: 20070301, end: 20070301
  2. DRUG, UNSPECIFIED [Concomitant]

REACTIONS (1)
  - DEATH [None]
